FAERS Safety Report 18410221 (Version 1)
Quarter: 2020Q4

REPORT INFORMATION
  Report Type: Spontaneous
  Country: US (occurrence: US)
  Receive Date: 20201021
  Receipt Date: 20201021
  Transmission Date: 20210114
  Serious: Yes (Hospitalization)
  Sender: FDA-Public Use
  Company Number: None

PATIENT
  Sex: Female

DRUGS (16)
  1. DULOXETINE. [Concomitant]
     Active Substance: DULOXETINE
  2. NOVOLOG [Concomitant]
     Active Substance: INSULIN ASPART
  3. CYMBALTA [Concomitant]
     Active Substance: DULOXETINE HYDROCHLORIDE
  4. DEXCIN [Concomitant]
  5. PRAVASTATIN. [Concomitant]
     Active Substance: PRAVASTATIN
  6. ALPRAZOLAM. [Concomitant]
     Active Substance: ALPRAZOLAM
  7. ESCITALOPRAM [Concomitant]
     Active Substance: ESCITALOPRAM OXALATE
  8. KEPPRA [Concomitant]
     Active Substance: LEVETIRACETAM
  9. PANTOPRAZOLE [Concomitant]
     Active Substance: PANTOPRAZOLE
  10. CAPECITABINE. [Suspect]
     Active Substance: CAPECITABINE
     Indication: NEOPLASM MALIGNANT
     Route: 048
  11. LEVOTHYROXINE. [Concomitant]
     Active Substance: LEVOTHYROXINE
  12. SYNTHROID [Concomitant]
     Active Substance: LEVOTHYROXINE SODIUM
  13. TOUJEO [Concomitant]
     Active Substance: INSULIN GLARGINE
  14. AMOXICILLIN. [Concomitant]
     Active Substance: AMOXICILLIN
  15. ASPIRIN. [Concomitant]
     Active Substance: ASPIRIN
  16. MIDODRINE [Concomitant]
     Active Substance: MIDODRINE

REACTIONS (2)
  - Fatigue [None]
  - Constipation [None]
